FAERS Safety Report 18542105 (Version 1)
Quarter: 2020Q4

REPORT INFORMATION
  Report Type: Spontaneous
  Country: US (occurrence: US)
  Receive Date: 20201125
  Receipt Date: 20201125
  Transmission Date: 20210114
  Serious: Yes (Death, Hospitalization)
  Sender: FDA-Public Use
  Company Number: US-RECORDATI RARE DISEASES-2096280

PATIENT
  Age: 73 Year
  Sex: Male

DRUGS (3)
  1. MITOTANE [Suspect]
     Active Substance: MITOTANE
  2. MITOTANE [Suspect]
     Active Substance: MITOTANE
  3. ISTURISA [Suspect]
     Active Substance: OSILODROSTAT PHOSPHATE
     Indication: PITUITARY-DEPENDENT CUSHING^S SYNDROME
     Dates: start: 202011

REACTIONS (5)
  - Asthenia [Not Recovered/Not Resolved]
  - Gait disturbance [Unknown]
  - Decreased appetite [Not Recovered/Not Resolved]
  - Delirium [Unknown]
  - Disease progression [Fatal]

NARRATIVE: CASE EVENT DATE: 202011
